FAERS Safety Report 19093643 (Version 2)
Quarter: 2021Q4

REPORT INFORMATION
  Report Type: Spontaneous
  Country: DE (occurrence: DE)
  Receive Date: 20210405
  Receipt Date: 20211209
  Transmission Date: 20220304
  Serious: Yes (Other)
  Sender: FDA-Public Use
  Company Number: DE-BRISTOL-MYERS SQUIBB COMPANY-BMS-2021-031747

PATIENT
  Age: 79 Year
  Sex: Male

DRUGS (3)
  1. NIVOLUMAB [Suspect]
     Active Substance: NIVOLUMAB
     Indication: Malignant melanoma
     Dosage: 1 MILLIGRAM/KILOGRAM
     Route: 065
  2. IPILIMUMAB [Suspect]
     Active Substance: IPILIMUMAB
     Indication: Malignant melanoma
     Route: 065
  3. HYDROCORTISONE [Concomitant]
     Active Substance: HYDROCORTISONE
     Indication: Product used for unknown indication
     Dosage: UNK
     Route: 065

REACTIONS (5)
  - Immune thrombocytopenia [Recovered/Resolved with Sequelae]
  - Neutropenia [Recovered/Resolved with Sequelae]
  - Diabetes mellitus [Unknown]
  - Endophthalmitis [Unknown]
  - Hypophysitis [Unknown]
